FAERS Safety Report 9508427 (Version 1)
Quarter: 2013Q1

REPORT INFORMATION
  Report Type: Spontaneous
  Country: US (occurrence: None)
  Receive Date: 20130305
  Receipt Date: 20130305
  Transmission Date: 20140127
  Serious: Yes (Other)
  Sender: FDA-Public Use
  Company Number: 163-21880-10061171

PATIENT
  Age: 77 Year
  Sex: Female

DRUGS (2)
  1. REVLIMID [Suspect]
     Indication: MYELODYSPLASTIC SYNDROME
     Dosage: CAPSULE, 10 MG, 28 IN 28 D, PO
     Dates: start: 20090306, end: 201205
  2. COUMADIN (WARFARIN SODIUM) [Concomitant]

REACTIONS (1)
  - Hypoaesthesia [None]
